FAERS Safety Report 8224798-X (Version None)
Quarter: 2012Q1

REPORT INFORMATION
  Report Type: 
  Country: None (occurrence: None)
  Receive Date: 20120319
  Receipt Date: 20120229
  Transmission Date: 20120608
  Serious: Yes (Hospitalization)
  Sender: FDA-Public Use
  Company Number: 024007

PATIENT
  Age: 60 Year
  Weight: 73.5 kg

DRUGS (11)
  1. NERISONE [Concomitant]
  2. HIRUDOID (HEPARINOID) [Concomitant]
  3. CRESTOR [Concomitant]
  4. SODIUM POLYSTYRENE SULFONATE [Concomitant]
  5. XALACOM (LATANOPROSTK TIMOLOL MALEATE) [Concomitant]
  6. MICADIS (TELMISARTAN) [Concomitant]
  7. PEGAPTANIB SODIUM (PEGAPTANIB SODIUM) UNKNOWN [Suspect]
     Indication: DIABETIC RETINAL OEDEMA
     Dosage: 0.3 MG, UNK, INTRAOCULAR
     Route: 031
     Dates: start: 20110425, end: 20111005
  8. CONIEL (BENIDIPINE HYDROCHLORIDE) [Concomitant]
  9. NOVOLOG [Concomitant]
  10. FAMOTIDINE [Concomitant]
  11. AZOPT (BRINZOLAMINE) [Concomitant]

REACTIONS (3)
  - VISUAL FIELD DEFECT [None]
  - GLAUCOMA [None]
  - CONDITION AGGRAVATED [None]
